FAERS Safety Report 5663664-0 (Version None)
Quarter: 2008Q1

REPORT INFORMATION
  Report Type: 
  Country: None (occurrence: None)
  Receive Date: 20080310
  Receipt Date: 20080222
  Transmission Date: 20080703
  Serious: Yes (Hospitalization)
  Sender: FDA-Public Use
  Company Number: 2005EU001274

PATIENT
  Age: 54 Year
  Sex: Male

DRUGS (20)
  1. FK506 (TACROILIMUS CAPSULES) [Suspect]
     Indication: RENAL TRANSPLANT
     Dosage: 6 MG, /D, ORAL; 4 MG, /4, ORAL; 5 MG, UID,
     Route: 048
     Dates: start: 20041018, end: 20041018
  2. FK506 (TACROILIMUS CAPSULES) [Suspect]
     Indication: RENAL TRANSPLANT
     Dosage: 6 MG, /D, ORAL; 4 MG, /4, ORAL; 5 MG, UID,
     Route: 048
     Dates: start: 20041019
  3. FK506 (TACROILIMUS CAPSULES) [Suspect]
     Indication: RENAL TRANSPLANT
     Dosage: 6 MG, /D, ORAL; 4 MG, /4, ORAL; 5 MG, UID,
     Route: 048
     Dates: start: 20041115
  4. DACLIZUMAB (DACLIZUMBA) [Suspect]
     Indication: RENAL TRANSPLANT
     Dosage: 2 MG/KG, TOTAL DOSE, IV NOS; 60MG, OTHER, IV NOS
     Route: 042
     Dates: start: 20041018, end: 20041218
  5. DACLIZUMAB (DACLIZUMBA) [Suspect]
     Indication: RENAL TRANSPLANT
     Dosage: 2 MG/KG, TOTAL DOSE, IV NOS; 60MG, OTHER, IV NOS
     Route: 042
     Dates: end: 20041218
  6. MYCOPHENOLATE MOFETIL [Suspect]
     Indication: RENAL TRANSPLANT
     Dosage: 2000 MG, /D, ORAL; 500 MG, UID/QD; 1500 MG, UID/QD
     Route: 048
     Dates: start: 20041018, end: 20041018
  7. MYCOPHENOLATE MOFETIL [Suspect]
     Indication: RENAL TRANSPLANT
     Dosage: 2000 MG, /D, ORAL; 500 MG, UID/QD; 1500 MG, UID/QD
     Route: 048
     Dates: start: 20041115
  8. CORTICOSTEROID (CORTICOSTEROID) [Suspect]
     Indication: RENAL TRANSPLANT
     Dosage: 250.00 MG, UID/OD, IV NOS; 5 MG/D, ORAL
     Route: 042
     Dates: start: 20041018, end: 20041018
  9. CORTICOSTEROID (CORTICOSTEROID) [Suspect]
     Indication: RENAL TRANSPLANT
     Dosage: 250.00 MG, UID/OD, IV NOS; 5 MG/D, ORAL
     Route: 042
     Dates: start: 20041019
  10. SEPTRA [Concomitant]
  11. ATENOLOL [Concomitant]
  12. PREDNISOLONE ACETATE [Concomitant]
  13. OMEPRAZOL (OMEPRAZOLE MAGNESIUM) [Concomitant]
  14. COTRIMOXAZOLE RATIOPHARM (SULFAMETHOXAZOLE, TRIMETHPHOPRIM) [Concomitant]
  15. ATORVASTATIN (ATORVASTATIN CALCIUM) [Concomitant]
  16. CIPRO [Concomitant]
  17. MEROPENEM (MEROPENEM) [Concomitant]
  18. VALGANCICLOVIR (VALGANCICILOVIR) [Concomitant]
  19. HEPARIN [Concomitant]
  20. CLAVULANIC ACID (CLAVULANIC ACID) [Concomitant]

REACTIONS (9)
  - CEREBRAL ISCHAEMIA [None]
  - CYTOMEGALOVIRUS INFECTION [None]
  - ESCHERICHIA URINARY TRACT INFECTION [None]
  - HEMIPARESIS [None]
  - PYREXIA [None]
  - URETERAL NECROSIS [None]
  - URINARY FISTULA [None]
  - URINARY TRACT INFECTION [None]
  - WEIGHT DECREASED [None]
